FAERS Safety Report 16802960 (Version 1)
Quarter: 2019Q3

REPORT INFORMATION
  Report Type: Spontaneous
  Country: DE (occurrence: DE)
  Receive Date: 20190913
  Receipt Date: 20190913
  Transmission Date: 20191005
  Serious: Yes (Congenital Anomaly, Other)
  Sender: FDA-Public Use
  Company Number: DE-SUN PHARMACEUTICAL INDUSTRIES LTD-2019RR-220519

PATIENT
  Age: 1 Day
  Sex: Male
  Weight: 2.06 kg

DRUGS (2)
  1. VALSARTAN. [Suspect]
     Active Substance: VALSARTAN
     Indication: HYPERTENSION
     Dosage: 80 [MG/D ]
     Route: 064
     Dates: start: 20180209, end: 20181026
  2. METHYLDOPA. [Concomitant]
     Active Substance: METHYLDOPA
     Indication: HYPERTENSION
     Dosage: 1000 [MG/D ] 4 SEPARATED DOSES
     Route: 064
     Dates: start: 20181027, end: 20181029

REACTIONS (11)
  - Renal dysplasia [Not Recovered/Not Resolved]
  - Small for dates baby [Recovered/Resolved]
  - Renal failure [Not Recovered/Not Resolved]
  - Potter^s syndrome [Not Recovered/Not Resolved]
  - Atrial septal defect [Unknown]
  - Respiratory disorder neonatal [Recovered/Resolved]
  - Pulmonary hypoplasia [Recovered/Resolved]
  - Patent ductus arteriosus [Unknown]
  - Microcephaly [Unknown]
  - Foetal exposure during pregnancy [Unknown]
  - Joint contracture [Recovering/Resolving]

NARRATIVE: CASE EVENT DATE: 20181029
